FAERS Safety Report 5799241-0 (Version None)
Quarter: 2008Q3

REPORT INFORMATION
  Report Type: 
  Country: None (occurrence: None)
  Receive Date: 20080702
  Receipt Date: 20080624
  Transmission Date: 20090109
  Serious: Yes (Other)
  Sender: FDA-Public Use
  Company Number: FR-PFIZER INC-2008046110

PATIENT
  Sex: Female
  Weight: 52 kg

DRUGS (1)
  1. CHANTIX [Suspect]
     Indication: SMOKING CESSATION THERAPY
     Route: 048
     Dates: start: 20080313, end: 20080101

REACTIONS (4)
  - DECREASED INTEREST [None]
  - DEPRESSED MOOD [None]
  - FATIGUE [None]
  - SLEEP DISORDER [None]
